FAERS Safety Report 7307606-0 (Version None)
Quarter: 2011Q1

REPORT INFORMATION
  Report Type: 
  Country: None (occurrence: None)
  Receive Date: 20110223
  Receipt Date: 20110223
  Transmission Date: 20110831
  Serious: Yes (Hospitalization)
  Sender: FDA-Public Use
  Company Number: None

PATIENT
  Age: 34 Year
  Sex: Male

DRUGS (1)
  1. CVS ALCOHOL PREP PADS WITH PAIN [Suspect]

REACTIONS (5)
  - DRUG INEFFECTIVE [None]
  - INJECTION SITE INFECTION [None]
  - PRODUCT CONTAMINATION [None]
  - PRODUCT QUALITY ISSUE [None]
  - BACTERIAL INFECTION [None]
